FAERS Safety Report 15187111 (Version 1)
Quarter: 2018Q3

REPORT INFORMATION
  Report Type: Report from Study
  Country: US (occurrence: US)
  Receive Date: 20180723
  Receipt Date: 20180723
  Transmission Date: 20181010
  Serious: No
  Sender: FDA-Public Use
  Company Number: US-EXELIXIS-CABO-18012072

PATIENT
  Sex: Male

DRUGS (4)
  1. AMLODIPINE [Concomitant]
     Active Substance: AMLODIPINE BESYLATE
  2. PROBIOTIC [Concomitant]
     Active Substance: PROBIOTICS NOS
  3. ATENOLOL. [Concomitant]
     Active Substance: ATENOLOL
  4. CABOMETYX [Suspect]
     Active Substance: CABOZANTINIB S-MALATE
     Indication: METASTASES TO LUNG
     Dosage: 60 MG, QD
     Route: 048
     Dates: start: 20170717

REACTIONS (2)
  - Off label use [Unknown]
  - Gastrointestinal disorder [Not Recovered/Not Resolved]
